FAERS Safety Report 9059840 (Version 1)
Quarter: 2013Q1

REPORT INFORMATION
  Report Type: Spontaneous
  Country: US (occurrence: None)
  Receive Date: 20130206
  Receipt Date: 20130206
  Transmission Date: 20140127
  Serious: No
  Sender: FDA-Public Use
  Company Number: None

PATIENT
  Age: 24 Year
  Sex: Female
  Weight: 72.58 kg

DRUGS (1)
  1. CITALOPRAM [Suspect]
     Indication: GENERALISED ANXIETY DISORDER
     Route: 048

REACTIONS (4)
  - Haematochezia [None]
  - Somnolence [None]
  - Insomnia [None]
  - Asthenia [None]
